FAERS Safety Report 4331488-2 (Version None)
Quarter: 2004Q1

REPORT INFORMATION
  Report Type: 
  Country: None (occurrence: None)
  Receive Date: 20040329
  Receipt Date: 20040317
  Transmission Date: 20041129
  Serious: Yes (Hospitalization)
  Sender: FDA-Public Use
  Company Number: US-JNJFOC-20040304406

PATIENT
  Sex: Female

DRUGS (1)
  1. DITROPAN XL [Suspect]
     Indication: DRUG USE FOR UNKNOWN INDICATION
     Dosage: ORAL

REACTIONS (1)
  - MYOCARDIAL INFARCTION [None]
